FAERS Safety Report 6260000-6 (Version None)
Quarter: 2009Q3

REPORT INFORMATION
  Report Type: 
  Country: None (occurrence: None)
  Receive Date: 20090708
  Receipt Date: 20090629
  Transmission Date: 20100115
  Serious: Yes (Other)
  Sender: FDA-Public Use
  Company Number: GB-PFIZER INC-2009233158

PATIENT
  Age: 72 Year

DRUGS (6)
  1. NAPROXEN AND NAPROXEN SODIUM [Suspect]
     Indication: RHEUMATOID ARTHRITIS
     Dosage: UNK
     Route: 048
     Dates: start: 19970101
  2. PREDNISOLONE AND PREDNISOLONE STEAGLATE [Suspect]
     Indication: RHEUMATOID ARTHRITIS
     Dosage: 7.5 MG, 1X/DAY
     Route: 048
     Dates: start: 20051001
  3. ALENDRONIC ACID [Suspect]
     Indication: PROPHYLAXIS
     Dosage: 70 MG, WEEKLY
     Route: 048
     Dates: start: 19700101
  4. ETANERCEPT [Suspect]
     Indication: RHEUMATOID ARTHRITIS
     Dosage: 50 MG, WEEKLY
     Route: 058
     Dates: start: 20090120, end: 20090501
  5. OMEPRAZOLE [Suspect]
     Dosage: 20 MG, 1X/DAY
     Route: 048
     Dates: start: 20030101
  6. ZYLORIC ^FAES^ [Suspect]
     Indication: GOUT
     Dosage: UNK
     Route: 048
     Dates: start: 19680101

REACTIONS (5)
  - ABNORMAL FAECES [None]
  - CONDITION AGGRAVATED [None]
  - DIVERTICULITIS [None]
  - HAEMATOCHEZIA [None]
  - RECTAL HAEMORRHAGE [None]
